FAERS Safety Report 7640247-4 (Version None)
Quarter: 2011Q3

REPORT INFORMATION
  Report Type: 
  Country: None (occurrence: None)
  Receive Date: 20110728
  Receipt Date: 20110627
  Transmission Date: 20111222
  Serious: No
  Sender: FDA-Public Use
  Company Number: US-BAYER-2011-057790

PATIENT
  Age: 82 Year
  Sex: Female
  Weight: 59 kg

DRUGS (7)
  1. OCUVITE [VIT C,BETACAROT,CUPRIC OXIDE,SE+,VIT E,ZNO] [Concomitant]
  2. GLUCOSAMINE [Concomitant]
  3. ALEVE (CAPLET) [Suspect]
     Indication: ARTHRITIS
     Dosage: 220 MG, PRN
     Route: 048
     Dates: start: 20110620, end: 20110620
  4. CITRACAL [Concomitant]
  5. MULTI-VITAMINS [Concomitant]
  6. SYNTHROID [Concomitant]
  7. PRAVASTATIN [Concomitant]

REACTIONS (1)
  - ECCHYMOSIS [None]
